FAERS Safety Report 20900519 (Version 1)
Quarter: 2022Q2

REPORT INFORMATION
  Report Type: Spontaneous
  Country: EG (occurrence: EG)
  Receive Date: 20220601
  Receipt Date: 20220601
  Transmission Date: 20220721
  Serious: Yes (Death)
  Sender: FDA-Public Use
  Company Number: EG-SA-SAC20220413001487

PATIENT
  Age: 6 Year
  Sex: Female

DRUGS (4)
  1. ALDURAZYME [Suspect]
     Active Substance: LARONIDASE
     Indication: Mucopolysaccharidosis I
     Dosage: UNK
     Route: 042
     Dates: start: 202101, end: 20220313
  2. SOLU-CORTEF [Concomitant]
     Active Substance: HYDROCORTISONE SODIUM SUCCINATE
     Indication: Premedication
  3. DIAMOX SEQUELS [Concomitant]
     Active Substance: ACETAZOLAMIDE
     Indication: Hydrocephalus
     Dosage: 250 MG, QD (0.5 TABLET)
     Dates: start: 202112
  4. CAPOTEN [Concomitant]
     Active Substance: CAPTOPRIL
     Indication: Cardiac failure
     Dosage: 0.5 MG/KG

REACTIONS (1)
  - Post procedural complication [Fatal]

NARRATIVE: CASE EVENT DATE: 20220101
